FAERS Safety Report 15605522 (Version 1)
Quarter: 2018Q4

REPORT INFORMATION
  Report Type: Spontaneous
  Country: DK (occurrence: DK)
  Receive Date: 20181112
  Receipt Date: 20181112
  Transmission Date: 20190205
  Serious: Yes (Hospitalization)
  Sender: FDA-Public Use
  Company Number: DK-TEVA-2018-DK-974633

PATIENT
  Age: 73 Year
  Sex: Female

DRUGS (5)
  1. PAMOL [Concomitant]
     Active Substance: ACETAMINOPHEN
     Indication: PAIN
     Dosage: 4000 MILLIGRAM DAILY; DOSE: 2 TABLETS AS NEEDED, NO MORE THAN.
     Route: 048
     Dates: start: 20160825
  2. PANTOPRAZOLE SODIUM SESQUIHYDRATE [Suspect]
     Active Substance: PANTOPRAZOLE SODIUM
     Indication: GASTROOESOPHAGEAL REFLUX DISEASE
     Dosage: 40 MILLIGRAM DAILY;
     Route: 048
     Dates: start: 20121204
  3. CODEINE [Concomitant]
     Active Substance: CODEINE
     Indication: PAIN
     Dosage: 100 MILLIGRAM DAILY; DOSE: 1 TABLET AS NEEDED, NO MORE THAN
     Route: 048
     Dates: start: 20150518
  4. BENADRYL [Concomitant]
     Active Substance: DIPHENHYDRAMINE HYDROCHLORIDE
     Indication: HYPERSENSITIVITY
     Dosage: 16 MILLIGRAM DAILY;
     Route: 048
     Dates: start: 20180524
  5. PULMICORT TURBUHALER [Concomitant]
     Active Substance: BUDESONIDE
     Indication: ASTHMA
     Dosage: 800 MICROGRAM DAILY; STRENGTH: 400 MICROGRAMS/DOSE
     Route: 055
     Dates: start: 20180219

REACTIONS (2)
  - Hip surgery [Recovered/Resolved]
  - Femur fracture [Recovered/Resolved]

NARRATIVE: CASE EVENT DATE: 201810
